FAERS Safety Report 18057098 (Version 1)
Quarter: 2020Q3

REPORT INFORMATION
  Report Type: Spontaneous
  Country: RO (occurrence: RO)
  Receive Date: 20200723
  Receipt Date: 20200723
  Transmission Date: 20201103
  Serious: Yes (Other)
  Sender: FDA-Public Use
  Company Number: RO-ROCHE-2642170

PATIENT
  Age: 57 Year

DRUGS (2)
  1. TOCILIZUMAB. [Suspect]
     Active Substance: TOCILIZUMAB
     Route: 042
  2. TOCILIZUMAB. [Suspect]
     Active Substance: TOCILIZUMAB
     Indication: RHEUMATOID ARTHRITIS
     Dosage: 1 400 MG VIAL + 1 80 MG VIAL
     Route: 042
     Dates: end: 20191206

REACTIONS (12)
  - Biliary tract disorder [Unknown]
  - Neutrophilia [Unknown]
  - Hepatocellular injury [Recovered/Resolved]
  - Delusion [Unknown]
  - Leukocytosis [Unknown]
  - Macrocytosis [Unknown]
  - Thrombocytosis [Unknown]
  - Cholestasis [Unknown]
  - Liver disorder [Unknown]
  - Thrombocytopenia [Unknown]
  - Upper respiratory tract infection [Unknown]
  - Alcohol withdrawal syndrome [Unknown]

NARRATIVE: CASE EVENT DATE: 20160601
